FAERS Safety Report 12518491 (Version 3)
Quarter: 2017Q4

REPORT INFORMATION
  Report Type: Spontaneous
  Country: FR (occurrence: FR)
  Receive Date: 20160630
  Receipt Date: 20171107
  Transmission Date: 20180320
  Serious: Yes (Other)
  Sender: FDA-Public Use
  Company Number: FR-ALLERGAN-1660378US

PATIENT
  Age: 72 Year
  Sex: Female

DRUGS (1)
  1. OZURDEX [Suspect]
     Active Substance: DEXAMETHASONE
     Indication: MACULAR OEDEMA
     Dosage: 0.7 MG, SINGLE
     Route: 031
     Dates: start: 201401

REACTIONS (3)
  - Viral uveitis [Recovering/Resolving]
  - Cytomegalovirus infection [Unknown]
  - Ocular hypertension [Recovered/Resolved]

NARRATIVE: CASE EVENT DATE: 2014
